FAERS Safety Report 9525987 (Version 5)
Quarter: 2013Q4

REPORT INFORMATION
  Report Type: Report from Study
  Country: US (occurrence: US)
  Receive Date: 20130915
  Receipt Date: 20131101
  Transmission Date: 20140711
  Serious: Yes (Other)
  Sender: FDA-Public Use
  Company Number: US-PFIZER INC-2013257340

PATIENT
  Age: 56 Year
  Sex: Female
  Weight: 115 kg

DRUGS (8)
  1. TOFACITINIB CITRATE [Suspect]
     Indication: RHEUMATOID ARTHRITIS
     Dosage: 10 MG, 2X/DAY
     Route: 048
     Dates: start: 20100730, end: 20130903
  2. METHOTREXATE [Concomitant]
     Indication: RHEUMATOID ARTHRITIS
     Dosage: 0.7 ML, QWK;
     Route: 058
     Dates: start: 20060509, end: 20130901
  3. DICLOFENAC [Concomitant]
     Indication: RHEUMATOID ARTHRITIS
     Dosage: 75 MG, BID
     Route: 048
     Dates: start: 20060509
  4. FOSAMAX [Concomitant]
     Indication: OSTEOPOROSIS
     Dosage: 70 MG, QWK
     Route: 048
     Dates: start: 19971222
  5. FOLIC ACID [Concomitant]
     Indication: SUPPLEMENTATION THERAPY
     Dosage: 1 MG, BID
     Route: 048
     Dates: start: 200607
  6. ADVAIR INHALER [Concomitant]
     Indication: ASTHMA
     Dosage: 1 PUFF, QD; ROUTE: INHALATION
     Route: 055
     Dates: start: 2006
  7. ALBUTEROL [Concomitant]
     Indication: ASTHMA
     Dosage: 1 PUFF, PRN; ROUTE: INHALATION
     Route: 055
     Dates: start: 20100831
  8. PREDNISONE [Concomitant]
     Indication: RHEUMATOID ARTHRITIS
     Dosage: 7 MG, QD
     Route: 048
     Dates: start: 20060509

REACTIONS (1)
  - Breast cancer female [Recovering/Resolving]
